FAERS Safety Report 5916454-5 (Version None)
Quarter: 2008Q4

REPORT INFORMATION
  Report Type: 
  Country: None (occurrence: None)
  Receive Date: 20081013
  Receipt Date: 20081006
  Transmission Date: 20090506
  Serious: Yes (Other)
  Sender: FDA-Public Use
  Company Number: GR-AMGEN-UK311722

PATIENT
  Sex: Male
  Weight: 67 kg

DRUGS (6)
  1. KEPIVANCE [Suspect]
     Indication: PERIPHERAL BLOOD STEM CELL APHERESIS
     Route: 042
     Dates: start: 20080916, end: 20080920
  2. ZOVIRAX [Concomitant]
     Route: 065
  3. REMERON [Concomitant]
     Route: 065
  4. GRANOCYTE [Concomitant]
     Route: 065
  5. EMEND [Concomitant]
     Route: 065
  6. ONDANSETRON [Concomitant]
     Route: 065

REACTIONS (3)
  - EYELID OEDEMA [None]
  - FACE OEDEMA [None]
  - PHARYNGEAL OEDEMA [None]
